FAERS Safety Report 8942609 (Version 3)
Quarter: 2013Q1

REPORT INFORMATION
  Report Type: Spontaneous
  Country: GR (occurrence: GR)
  Receive Date: 20121204
  Receipt Date: 20130116
  Transmission Date: 20140127
  Serious: Yes (Other)
  Sender: FDA-Public Use
  Company Number: GR-MERCK-1211GRC012092

PATIENT
  Age: 52 Year
  Sex: Female
  Weight: 65 kg

DRUGS (6)
  1. PEGINTRON [Suspect]
     Indication: HEPATITIS C
     Dosage: 100 MICROGRAM, UNK
  2. REBETOL [Suspect]
     Indication: HEPATITIS C
     Dosage: 1200 MG
     Route: 048
  3. REBETOL [Suspect]
     Dosage: 5 DF, QD
     Route: 048
  4. REBETOL [Suspect]
     Dosage: 4 DF, QD
     Route: 048
  5. REBETOL [Suspect]
     Dosage: 3 DF, QD
     Route: 048
     Dates: start: 20121231
  6. VICTRELIS [Suspect]
     Indication: HEPATITIS C
     Dosage: 800 MG, TID

REACTIONS (3)
  - Haematocrit decreased [Unknown]
  - Haemoglobin decreased [Unknown]
  - Fatigue [Unknown]
